FAERS Safety Report 8235673-9 (Version None)
Quarter: 2012Q1

REPORT INFORMATION
  Report Type: 
  Country: None (occurrence: None)
  Receive Date: 20120326
  Receipt Date: 20120316
  Transmission Date: 20120608
  Serious: Yes (Hospitalization)
  Sender: FDA-Public Use
  Company Number: FR-FRI-1000029336

PATIENT
  Sex: Female

DRUGS (2)
  1. ESCITALOPRAM [Suspect]
     Indication: DEPRESSION
     Dosage: 10 MG
     Route: 048
     Dates: end: 20120228
  2. PREVISCAN [Suspect]
     Indication: ARRHYTHMIA
     Dosage: 5 MG
     Route: 048
     Dates: end: 20120228

REACTIONS (1)
  - SPINAL CORD HAEMORRHAGE [None]
